FAERS Safety Report 14681924 (Version 1)
Quarter: 2018Q1

REPORT INFORMATION
  Report Type: Report from Study
  Country: US (occurrence: US)
  Receive Date: 20180326
  Receipt Date: 20180326
  Transmission Date: 20180509
  Serious: Yes (Other)
  Sender: FDA-Public Use
  Company Number: US-ACTELION-A-NJ2018-167417

PATIENT
  Age: 43 Year
  Sex: Female

DRUGS (3)
  1. FUROSEMIDE. [Concomitant]
     Active Substance: FUROSEMIDE
     Dosage: UNK
  2. SPIRONOLACTONE. [Concomitant]
     Active Substance: SPIRONOLACTONE
     Dosage: UNK
  3. OPSUMIT [Suspect]
     Active Substance: MACITENTAN
     Indication: PULMONARY ARTERIAL HYPERTENSION
     Dosage: 10 MG, QD
     Route: 048
     Dates: start: 20180103, end: 20180210

REACTIONS (5)
  - Fluid retention [Not Recovered/Not Resolved]
  - Concomitant disease aggravated [Unknown]
  - Hepatic failure [Unknown]
  - Migraine [Unknown]
  - Unevaluable event [Unknown]

NARRATIVE: CASE EVENT DATE: 201801
